FAERS Safety Report 17418026 (Version 1)
Quarter: 2020Q1

REPORT INFORMATION
  Report Type: Spontaneous
  Country: GB (occurrence: GB)
  Receive Date: 20200214
  Receipt Date: 20200214
  Transmission Date: 20200409
  Serious: Yes (Other)
  Sender: FDA-Public Use
  Company Number: GB-TEVA-2020-GB-1185220

PATIENT
  Age: 49 Year
  Sex: Male
  Weight: 82.9 kg

DRUGS (1)
  1. LANSOPRAZOLE. [Suspect]
     Active Substance: LANSOPRAZOLE
     Indication: HIATUS HERNIA
     Dosage: 30MG
     Route: 048
     Dates: start: 20200111, end: 20200124

REACTIONS (2)
  - Productive cough [Not Recovered/Not Resolved]
  - Diarrhoea [Recovered/Resolved]

NARRATIVE: CASE EVENT DATE: 20200111
